FAERS Safety Report 5644436-X (Version None)
Quarter: 2008Q1

REPORT INFORMATION
  Report Type: 
  Country: None (occurrence: None)
  Receive Date: 20080229
  Receipt Date: 20080220
  Transmission Date: 20080703
  Serious: Yes (Life-Threatening, Hospitalization, Disabling)
  Sender: FDA-Public Use
  Company Number: GB-AMGEN-US255707

PATIENT
  Sex: Female
  Weight: 86.4 kg

DRUGS (8)
  1. ENBREL [Suspect]
     Indication: SYSTEMIC LUPUS ERYTHEMATOSUS
     Route: 058
     Dates: start: 20070312, end: 20071105
  2. ENBREL [Suspect]
     Indication: PSORIASIS
  3. DIHYDROCODEINE [Concomitant]
     Indication: PAIN
     Dosage: 50/500 FREQUENCY UNKNOWN
     Route: 048
     Dates: start: 20010101
  4. FOLIC ACID [Concomitant]
     Dosage: UNKNOWN
     Route: 065
  5. SIMVASTATIN [Concomitant]
     Indication: BLOOD CHOLESTEROL INCREASED
     Dosage: 40 MG FREQUENCY UNKNOWN
     Route: 065
     Dates: start: 20050101
  6. DOSULEPIN [Concomitant]
     Dosage: UNKNOWN
     Route: 065
  7. ASPIRIN [Concomitant]
     Indication: DEEP VEIN THROMBOSIS
     Dosage: 75 MG FREQUENCY UNKNOWN
     Route: 048
     Dates: start: 20010101
  8. LISINOPRIL [Concomitant]
     Indication: HYPERTENSION
     Dosage: 5 MG FREQUENCY UNKNOWN
     Route: 065
     Dates: start: 20050101

REACTIONS (4)
  - DRUG INEFFECTIVE [None]
  - HENOCH-SCHONLEIN PURPURA [None]
  - RENAL FAILURE ACUTE [None]
  - VASCULITIS NECROTISING [None]
